FAERS Safety Report 9077616 (Version 1)
Quarter: 2013Q1

REPORT INFORMATION
  Report Type: Report from Study
  Country: US (occurrence: US)
  Receive Date: 20130130
  Receipt Date: 20130130
  Transmission Date: 20140127
  Serious: No
  Sender: FDA-Public Use
  Company Number: US-ABBOTT-12P-163-0978168-00

PATIENT
  Age: 72 Year
  Sex: Female

DRUGS (21)
  1. HUMIRA [Suspect]
     Indication: PSORIATIC ARTHROPATHY
     Dates: start: 20120830
  2. LEVOTHYROXINE SODIUM [Concomitant]
     Indication: THYROID DISORDER
  3. CITRACAL D [Concomitant]
     Indication: PRODUCT USED FOR UNKNOWN INDICATION
  4. ACTONEL [Concomitant]
     Indication: OSTEOPOROSIS
  5. NEXIUM CDR [Concomitant]
     Indication: GASTROOESOPHAGEAL REFLUX DISEASE
  6. FUROSEMIDE [Concomitant]
     Indication: HYPERTENSION
  7. KLOR-CON M10CR [Concomitant]
     Indication: PRODUCT USED FOR UNKNOWN INDICATION
     Dosage: 1 DAILY
  8. VERAPAMIL HCL CR [Concomitant]
     Indication: HYPERTENSION
  9. ASPIRIN [Concomitant]
     Indication: PROPHYLAXIS
  10. ACIDOPHILUS [Concomitant]
     Indication: GASTRIC DISORDER
     Dosage: 1 TAB WITH MEALS
  11. LACTAID [Concomitant]
     Indication: LACTOSE INTOLERANCE
     Dosage: 1 BEFORE MEALS
  12. FLAX SEEDS [Concomitant]
     Indication: BLOOD CHOLESTEROL
     Dosage: 1 TSP DAILY
  13. SENOKOT XL [Concomitant]
     Indication: CONSTIPATION
  14. SULFASALAZINE [Concomitant]
     Indication: ARTHRITIS
     Dosage: TWICE DAILY AFTER MEALS
  15. PREDNISONE [Concomitant]
     Indication: ARTHRITIS
     Dosage: 3 TABS DAILY
  16. ESTRACE [Concomitant]
     Indication: HORMONE LEVEL ABNORMAL
     Dosage: 1 MG/GM EVERY OTHER DAY
  17. PEG-3350 PACK [Concomitant]
     Indication: CONSTIPATION
     Dosage: 1 PACKET TWICE DAILY
  18. BACLOFEN [Concomitant]
     Indication: MUSCLE RELAXANT THERAPY
     Dosage: 1 AT HOUR OF SLEEP
  19. PERCOCET [Concomitant]
     Indication: PAIN
     Dosage: 5/325 MG, 1 TAB 3 TIMES DAILY AS NEEDED
  20. TRIAMCINOLONE ACETONIDE [Concomitant]
     Indication: PSORIASIS
     Dosage: 0.1 TWICE DAILY
  21. LYRICA [Concomitant]
     Indication: NEUROPATHY PERIPHERAL
     Dosage: 1 TAB IN AM AND 2 TAB IN PM

REACTIONS (1)
  - Headache [Not Recovered/Not Resolved]
